FAERS Safety Report 4658616-3 (Version None)
Quarter: 2005Q2

REPORT INFORMATION
  Report Type: 
  Country: None (occurrence: None)
  Receive Date: 20050511
  Receipt Date: 20041203
  Transmission Date: 20051028
  Serious: Yes (Hospitalization)
  Sender: FDA-Public Use
  Company Number: GB-GLAXOSMITHKLINE-B0359722A

PATIENT
  Sex: Female

DRUGS (1)
  1. PAROXETINE HCL [Suspect]
     Route: 065

REACTIONS (6)
  - ANKLE FRACTURE [None]
  - COMPLETED SUICIDE [None]
  - LACERATION [None]
  - PERSONALITY CHANGE [None]
  - SPINAL FRACTURE [None]
  - SUICIDE ATTEMPT [None]
